FAERS Safety Report 7065234-9 (Version None)
Quarter: 2010Q4

REPORT INFORMATION
  Report Type: 
  Country: None (occurrence: None)
  Receive Date: 20101019
  Receipt Date: 20101004
  Transmission Date: 20110411
  Serious: Yes (Congenital Anomaly, Other)
  Sender: FDA-Public Use
  Company Number: 019910

PATIENT
  Sex: Male
  Weight: 3.1752 kg

DRUGS (3)
  1. KEPPRA [Suspect]
     Indication: EPILEPSY
     Dosage: (2000 MG TRANSPLACENTAL)
     Route: 064
     Dates: start: 20080101
  2. FOLIC ACID [Concomitant]
  3. PRENATAL VITAMINS /01549301/ [Concomitant]

REACTIONS (6)
  - GASTROOESOPHAGEAL REFLUX DISEASE [None]
  - MATERNAL DRUGS AFFECTING FOETUS [None]
  - PHIMOSIS [None]
  - PILONIDAL CYST CONGENITAL [None]
  - RHINITIS ALLERGIC [None]
  - UMBILICAL GRANULOMA [None]
